FAERS Safety Report 11119892 (Version 1)
Quarter: 2015Q2

REPORT INFORMATION
  Report Type: Report from Study
  Country: DE (occurrence: DE)
  Receive Date: 20150518
  Receipt Date: 20150518
  Transmission Date: 20150821
  Serious: Yes (Death, Other)
  Sender: FDA-Public Use
  Company Number: DE-CELGENE-DEU-2015033730

PATIENT
  Age: 90 Year
  Sex: Female

DRUGS (1)
  1. AZACITIDINE INJECTABLE [Suspect]
     Active Substance: AZACITIDINE
     Indication: MYELODYSPLASTIC SYNDROME
     Route: 050
     Dates: start: 201401, end: 201501

REACTIONS (3)
  - Femoral neck fracture [Unknown]
  - Embolism [Fatal]
  - Fall [Unknown]
